FAERS Safety Report 21768008 (Version 1)
Quarter: 2022Q4

REPORT INFORMATION
  Report Type: Spontaneous
  Country: JP (occurrence: JP)
  Receive Date: 20221222
  Receipt Date: 20221222
  Transmission Date: 20230113
  Serious: Yes (Hospitalization, Congenital Anomaly)
  Sender: FDA-Public Use
  Company Number: JP-BAXTER-2022BAX021062

PATIENT
  Sex: Male

DRUGS (5)
  1. BLEOMYCIN [Suspect]
     Active Substance: BLEOMYCIN SULFATE
     Indication: Maternal cancer in pregnancy
     Dosage: INJECTION
     Route: 064
  2. DOXORUBICIN [Suspect]
     Active Substance: DOXORUBICIN
     Indication: Maternal cancer in pregnancy
     Dosage: INJECTION
     Route: 064
  3. VINBLASTINE SULFATE [Suspect]
     Active Substance: VINBLASTINE SULFATE
     Indication: Maternal cancer in pregnancy
     Dosage: INJECTION
     Route: 064
  4. DACARBAZINE [Suspect]
     Active Substance: DACARBAZINE
     Indication: Maternal cancer in pregnancy
     Dosage: UNK
     Route: 064
  5. DEXAMETHASONE [Suspect]
     Active Substance: DEXAMETHASONE
     Indication: Maternal cancer in pregnancy
     Dosage: UNK
     Route: 064

REACTIONS (7)
  - Ventricular septal defect [Unknown]
  - Patent ductus arteriosus [Unknown]
  - Cleft lip and palate [Unknown]
  - Lissencephaly [Unknown]
  - Polydactyly [Unknown]
  - Persistent left superior vena cava [Unknown]
  - Low birth weight baby [Unknown]
